FAERS Safety Report 5893493-4 (Version None)
Quarter: 2008Q3

REPORT INFORMATION
  Report Type: 
  Country: None (occurrence: None)
  Receive Date: 20080923
  Receipt Date: 20080916
  Transmission Date: 20090109
  Serious: Yes (Other)
  Sender: FDA-Public Use
  Company Number: NL-TEVA-177632ISR

PATIENT
  Sex: Female

DRUGS (6)
  1. METHOTREXATE [Suspect]
     Indication: RHEUMATOID ARTHRITIS
     Dates: start: 19950701
  2. PREDNISONE [Suspect]
     Indication: RHEUMATOID ARTHRITIS
     Dates: start: 20060301
  3. PREDNISONE [Suspect]
  4. ADALIMUMAB [Suspect]
     Dates: start: 20080201
  5. ALENDRONATE SODIUM [Concomitant]
     Dates: start: 20060301
  6. FOLIC ACID [Concomitant]
     Dates: start: 19970301

REACTIONS (1)
  - SQUAMOUS CELL CARCINOMA [None]
